FAERS Safety Report 21607897 (Version 1)
Quarter: 2022Q4

REPORT INFORMATION
  Report Type: Spontaneous
  Country: CA (occurrence: CA)
  Receive Date: 20221117
  Receipt Date: 20221117
  Transmission Date: 20230112
  Serious: Yes (Death, Other)
  Sender: FDA-Public Use
  Company Number: CA-SAMSUNG BIOEPIS-SB-2022-28904

PATIENT
  Age: 67 Year
  Sex: Male
  Weight: 98 kg

DRUGS (1)
  1. INFLIXIMAB [Suspect]
     Active Substance: INFLIXIMAB
     Indication: Ankylosing spondylitis
     Route: 042

REACTIONS (7)
  - Death [Fatal]
  - Back pain [Fatal]
  - Blood pressure increased [Fatal]
  - Musculoskeletal stiffness [Fatal]
  - Neck pain [Fatal]
  - Pain in extremity [Fatal]
  - Spinal osteoarthritis [Fatal]
